FAERS Safety Report 12874416 (Version 1)
Quarter: 2016Q4

REPORT INFORMATION
  Report Type: Other
  Country: US (occurrence: US)
  Receive Date: 20161021
  Receipt Date: 20161021
  Transmission Date: 20170207
  Serious: Yes (Hospitalization)
  Sender: FDA-Public Use
  Company Number: US-DOLGENCORP-1058640

PATIENT
  Sex: Female

DRUGS (2)
  1. REXALL DIPHENHYDRAMINE HCL [Suspect]
     Active Substance: DIPHENHYDRAMINE HYDROCHLORIDE
     Indication: INSOMNIA
     Route: 048
     Dates: start: 20161004, end: 20161004
  2. DIPHENDYDRAMINE HYDROCHLORIDE [Suspect]
     Active Substance: DIPHENHYDRAMINE HYDROCHLORIDE
     Route: 048
     Dates: start: 20161004, end: 20161004

REACTIONS (2)
  - Diarrhoea [Recovered/Resolved]
  - Abdominal pain upper [None]

NARRATIVE: CASE EVENT DATE: 20161005
